FAERS Safety Report 7026349-4 (Version None)
Quarter: 2010Q4

REPORT INFORMATION
  Report Type: 
  Country: None (occurrence: None)
  Receive Date: 20101004
  Receipt Date: 20100929
  Transmission Date: 20110411
  Serious: Yes (Death, Hospitalization)
  Sender: FDA-Public Use
  Company Number: US-ELI_LILLY_AND_COMPANY-US200906004681

PATIENT
  Sex: Female
  Weight: 68.027 kg

DRUGS (17)
  1. BYETTA [Suspect]
     Dosage: UNK, UNK
     Dates: start: 20051212, end: 20060818
  2. AMARYL [Concomitant]
  3. AVANDAMET [Concomitant]
  4. AVAPRO [Concomitant]
  5. FUROSEMIDE [Concomitant]
  6. TOPROL-XL [Concomitant]
  7. CLONIDINE [Concomitant]
  8. DIGITEK [Concomitant]
  9. KLOR-CON [Concomitant]
  10. ASPIRIN [Concomitant]
  11. MULTIVITAMIN [Concomitant]
  12. TYLENOL                                 /SCH/ [Concomitant]
  13. BENADRYL [Concomitant]
  14. ACTOS                                   /AUS/ [Concomitant]
     Dosage: UNK, UNKNOWN
  15. FENTANYL [Concomitant]
     Dosage: UNK, UNKNOWN
  16. LEVEMIR [Concomitant]
     Dosage: UNK, UNKNOWN
  17. PERCOCET [Concomitant]
     Dosage: UNK, UNKNOWN

REACTIONS (5)
  - DUODENAL ULCER [None]
  - OFF LABEL USE [None]
  - PANCREATIC CARCINOMA METASTATIC [None]
  - PYREXIA [None]
  - RENAL INJURY [None]
